FAERS Safety Report 5564665-3 (Version None)
Quarter: 2007Q4

REPORT INFORMATION
  Report Type: 
  Country: None (occurrence: None)
  Receive Date: 20071213
  Receipt Date: 20071213
  Transmission Date: 20080405
  Serious: Yes (Death)
  Sender: FDA-Public Use
  Company Number: None

PATIENT
  Age: 62 Year
  Sex: Female

DRUGS (8)
  1. CETUXIMAB [Suspect]
     Indication: BREAST CANCER METASTATIC
     Dosage: 250MG/M2 WEEKLY INTRAVENOUS BOLUS
     Route: 040
     Dates: start: 20070607, end: 20071121
  2. CARBOPLATIN [Suspect]
     Indication: BREAST CANCER METASTATIC
     Dosage: 1.5 AUC WEEKLY INTRAVENOUS BOLUS
     Route: 040
     Dates: start: 20070607, end: 20071121
  3. COMPAZINE [Concomitant]
  4. MAGNESIUM OXIDE [Concomitant]
  5. LOVENOX [Concomitant]
  6. CEFTRIAXONE [Concomitant]
  7. LASIX [Concomitant]
  8. OXYGEN SUPPLEMENTATION [Concomitant]

REACTIONS (4)
  - CEREBRAL HAEMORRHAGE [None]
  - EMPHYSEMA [None]
  - PNEUMONIA [None]
  - PULMONARY OEDEMA [None]
